FAERS Safety Report 9990061 (Version 1)
Quarter: 2014Q1

REPORT INFORMATION
  Report Type: Report from Study
  Country: US (occurrence: US)
  Receive Date: 20140310
  Receipt Date: 20140310
  Transmission Date: 20141002
  Serious: No
  Sender: FDA-Public Use
  Company Number: US-ABBVIE-13P-163-1132272-00

PATIENT
  Age: 16 Year
  Sex: Male

DRUGS (7)
  1. HUMIRA [Suspect]
     Indication: COLITIS ULCERATIVE
     Dates: start: 201301
  2. METHOTREXATE [Concomitant]
     Indication: PRODUCT USED FOR UNKNOWN INDICATION
     Dosage: 2.5MG 8 WEEKLY
  3. URSODIOL [Concomitant]
     Indication: CHOLANGITIS SCLEROSING
     Dosage: 250MG 1/2 TABLET TWICE A DAY
  4. FOLIC ACID [Concomitant]
     Indication: VITAMIN SUPPLEMENTATION
     Dosage: 1MG DAILY
  5. IRON [Concomitant]
     Indication: ANAEMIA
     Dosage: ONE WITH DINNER
  6. CALCIUM WITH VITAMIN D [Concomitant]
     Indication: MINERAL SUPPLEMENTATION
     Dosage: 2 TABLETS DAILY
  7. VITAMIN D NOS [Concomitant]
     Indication: VITAMIN D DECREASED
     Dosage: 1000 IU DAILY

REACTIONS (1)
  - Injection site haemorrhage [Recovered/Resolved]
